FAERS Safety Report 4307208-4 (Version None)
Quarter: 2004Q1

REPORT INFORMATION
  Report Type: 
  Country: None (occurrence: None)
  Receive Date: 20040224
  Receipt Date: 20040129
  Transmission Date: 20041129
  Serious: Yes (Hospitalization)
  Sender: FDA-Public Use
  Company Number: 04P-163-0249276-00

PATIENT
  Age: 23 Year
  Sex: Male
  Weight: 58.0604 kg

DRUGS (3)
  1. DEPAKOTE ER [Suspect]
     Dosage: 750 MG, DAILY AT BEDTIME
  2. CLOZAPINE [Suspect]
     Indication: SCHIZOPHRENIA, PARANOID TYPE
     Dosage: 450 MG, DAILY AT BEDTIME,PER ORAL
     Route: 048
     Dates: start: 20021001
  3. PROPRANOLOL [Suspect]
     Indication: SCHIZOPHRENIA, PARANOID TYPE
     Dosage: 10 MG, 2 IN 1 D

REACTIONS (1)
  - PSYCHOTIC DISORDER [None]
